FAERS Safety Report 6508190-1 (Version None)
Quarter: 2009Q4

REPORT INFORMATION
  Report Type: 
  Country: None (occurrence: None)
  Receive Date: 20091221
  Receipt Date: 20081212
  Transmission Date: 20100525
  Serious: No
  Sender: FDA-Public Use
  Company Number: US-ASTRAZENECA-2008UW27907

PATIENT
  Age: 58 Year
  Sex: Female
  Weight: 40.8 kg

DRUGS (6)
  1. CRESTOR [Suspect]
     Indication: BLOOD CHOLESTEROL INCREASED
     Route: 048
     Dates: start: 20081207
  2. PREVACID [Concomitant]
  3. VITAMINS [Concomitant]
  4. CALTRATE [Concomitant]
  5. CENTRUM SILVER [Concomitant]
  6. ASPIRIN [Concomitant]

REACTIONS (1)
  - GASTROOESOPHAGEAL REFLUX DISEASE [None]
